FAERS Safety Report 5027628-2 (Version None)
Quarter: 2006Q2

REPORT INFORMATION
  Report Type: 
  Country: None (occurrence: None)
  Receive Date: 20060616
  Receipt Date: 20060606
  Transmission Date: 20061013
  Serious: Yes (Hospitalization)
  Sender: FDA-Public Use
  Company Number: TR-JNJFOC-20060602838

PATIENT
  Age: 40 Year
  Sex: Female

DRUGS (2)
  1. TARIVID [Suspect]
     Indication: DIARRHOEA HAEMORRHAGIC
     Route: 065
  2. TARIVID [Suspect]
     Indication: DIARRHOEA
     Route: 065

REACTIONS (1)
  - ACUTE FEBRILE NEUTROPHILIC DERMATOSIS [None]
